FAERS Safety Report 20299826 (Version 4)
Quarter: 2022Q2

REPORT INFORMATION
  Report Type: Report from Study
  Country: US (occurrence: US)
  Receive Date: 20220105
  Receipt Date: 20220420
  Transmission Date: 20220720
  Serious: Yes (Death, Hospitalization)
  Sender: FDA-Public Use
  Company Number: US-PFIZER INC-202101878770

PATIENT
  Age: 64 Year
  Sex: Male
  Weight: 97.5 kg

DRUGS (3)
  1. TALAZOPARIB [Suspect]
     Active Substance: TALAZOPARIB
     Dosage: 250 MG, CYCLIC (ON DAYS 1-3)
     Route: 048
     Dates: start: 20180116, end: 20180411
  2. CARBOPLATIN [Suspect]
     Active Substance: CARBOPLATIN
     Dosage: AUC 6 IV OVER 30 MIN ON DAY 1
     Route: 042
     Dates: start: 20180116, end: 20180409
  3. TAXOL [Suspect]
     Active Substance: PACLITAXEL
     Dosage: OVER 1 HR ON DAYS 1, 8 AND 15
     Route: 042
     Dates: start: 20180116, end: 20180319

REACTIONS (1)
  - Haemorrhage intracranial [Fatal]

NARRATIVE: CASE EVENT DATE: 20180505
